FAERS Safety Report 23148202 (Version 2)
Quarter: 2023Q4

REPORT INFORMATION
  Report Type: Spontaneous
  Country: CN (occurrence: None)
  Receive Date: 20231106
  Receipt Date: 20231120
  Transmission Date: 20240109
  Serious: Yes (Other)
  Sender: FDA-Public Use
  Company Number: CN-Unichem Pharmaceuticals (USA) Inc-UCM202310-001361

PATIENT
  Age: 19 Year
  Sex: Male

DRUGS (1)
  1. DIVALPROEX SODIUM [Suspect]
     Active Substance: DIVALPROEX SODIUM
     Indication: Bipolar disorder
     Dates: start: 201601

REACTIONS (2)
  - Pleural effusion [Recovering/Resolving]
  - Pyrexia [Recovered/Resolved]
